FAERS Safety Report 24140679 (Version 1)
Quarter: 2024Q3

REPORT INFORMATION
  Report Type: Spontaneous
  Country: CN (occurrence: CN)
  Receive Date: 20240726
  Receipt Date: 20240726
  Transmission Date: 20241017
  Serious: Yes (Disabling, Other)
  Sender: BAXTER
  Company Number: None

PATIENT
  Age: 59 Year
  Sex: Female
  Weight: 66 kg

DRUGS (6)
  1. CYCLOPHOSPHAMIDE [Suspect]
     Active Substance: CYCLOPHOSPHAMIDE
     Indication: Chemotherapy
     Dosage: 1.2 G, ONE TIME IN 5 DAYS, DOSE WAS REDUCED, AS A PART OF RCHOP REGIMEN
     Route: 041
     Dates: start: 20240712, end: 20240713
  2. DOXORUBICIN [Suspect]
     Active Substance: DOXORUBICIN
     Indication: Chemotherapy
     Dosage: 80 MG, ONE TIME IN 21 DAYS, DOSE WAS REDUCED, AS A PART OF RCHOP REGIMEN
     Route: 041
     Dates: start: 20240712, end: 20240713
  3. VINDESINE [Suspect]
     Active Substance: VINDESINE
     Indication: Chemotherapy
     Dosage: 4 MG, ONE TIME IN 7 DAYS, DOSE WAS REDUCED, AS A PART OF RCHOP REGIMEN
     Route: 041
     Dates: start: 20240712, end: 20240713
  4. PREDNISONE ACETATE [Suspect]
     Active Substance: PREDNISONE ACETATE
     Indication: Chemotherapy
     Dosage: 60 MG, ONE TIME IN ONE DAY, DOSE WAS REDUCED, AS A PART OF RCHOP REGIMEN
     Route: 048
     Dates: start: 20240712, end: 20240713
  5. RITUXIMAB [Suspect]
     Active Substance: RITUXIMAB
     Indication: Chemotherapy
     Dosage: UNK, DOSE WAS REDUCED, AS A PART OF RCHOP REGIMEN
     Route: 065
  6. ZUBERITAMAB [Suspect]
     Active Substance: ZUBERITAMAB
     Dosage: 680 MG, START DATE: JUL-2024
     Route: 041

REACTIONS (5)
  - Gastric perforation [Recovering/Resolving]
  - Abdominal pain upper [Unknown]
  - Abdominal tenderness [Unknown]
  - Muscle tightness [Unknown]
  - Peritonitis [Recovering/Resolving]

NARRATIVE: CASE EVENT DATE: 20240713
